FAERS Safety Report 9871520 (Version 1)
Quarter: 2014Q1

REPORT INFORMATION
  Report Type: Report from Study
  Country: US (occurrence: US)
  Receive Date: 20140205
  Receipt Date: 20140205
  Transmission Date: 20141002
  Serious: No
  Sender: FDA-Public Use
  Company Number: US-ALEXION-A201400275

PATIENT
  Age: 17 Year
  Sex: Female

DRUGS (6)
  1. SOLIRIS [Suspect]
     Indication: PAROXYSMAL NOCTURNAL HAEMOGLOBINURIA
     Dosage: 900 MG, Q2W
     Route: 042
     Dates: start: 20130613
  2. ATG                                /00575401/ [Concomitant]
     Indication: IMMUNOSUPPRESSANT DRUG THERAPY
     Dosage: UNK
     Dates: start: 20110525
  3. ATG                                /00575401/ [Concomitant]
     Dosage: UNK
     Dates: start: 20111229
  4. BACTRIM [Concomitant]
     Indication: ANTIBIOTIC THERAPY
     Dosage: UNK, FRI-SAT-SUN
     Dates: start: 20120423
  5. CYCLOSPORINE [Concomitant]
     Indication: IMMUNOSUPPRESSANT DRUG THERAPY
     Dosage: UNK
     Dates: start: 20120423
  6. PROVERA [Concomitant]
     Indication: MENOMETRORRHAGIA
     Dosage: UNK
     Dates: start: 20120423

REACTIONS (1)
  - Headache [Unknown]
